FAERS Safety Report 4748231-5 (Version None)
Quarter: 2005Q3

REPORT INFORMATION
  Report Type: 
  Country: None (occurrence: None)
  Receive Date: 20050815
  Receipt Date: 20050803
  Transmission Date: 20060218
  Serious: Yes (Hospitalization)
  Sender: FDA-Public Use
  Company Number: 27141

PATIENT
  Age: 74 Year
  Sex: Female

DRUGS (13)
  1. DISCOTRINE (GLYCERYL TRINITRATE) [Suspect]
     Dosage: TRANSDERMAL
     Route: 062
     Dates: end: 20050326
  2. ALDACTONE [Suspect]
     Dosage: 1 DOSAGE FORMS (1 DOSAGE FORMS, 1 IN 1 DAY (S))  ORAL
     Route: 048
  3. ASPEGIC 1000 [Suspect]
     Dosage: ORAL
     Route: 048
     Dates: end: 20050330
  4. DIAMICRON (GLICAZIDE) [Suspect]
     Dosage: ORAL
     Route: 048
  5. BISOPROLOL FUMARATE [Suspect]
     Dosage: ORAL
     Route: 048
  6. PREVISCAN (FLUINDIONE) [Suspect]
     Dosage: ORAL
     Route: 048
     Dates: end: 20050330
  7. LEVOTHYROXINE SODIUM [Suspect]
     Dosage: ORAL
     Route: 048
  8. FONZYLANE (BUFLOMEDIL HYDROCHLORIDE) [Suspect]
     Dosage: ORAL
     Route: 048
  9. FENOFIBRATE [Suspect]
     Dosage: ORAL
     Route: 048
  10. VASTAREL (TRIMETAZIDINE HYDROCHLORIDE) [Suspect]
     Dosage: ORAL
     Route: 048
  11. DAFLON (DIOSMIN) [Suspect]
     Dosage: ORAL
     Route: 048
  12. ATARAX [Suspect]
     Dosage: ORAL
     Route: 048
  13. STILNOX (ZOLPIDEM) [Suspect]
     Dosage: ORAL
     Route: 048

REACTIONS (9)
  - ANTI-THYROID ANTIBODY POSITIVE [None]
  - BLOOD IMMUNOGLOBULIN A INCREASED [None]
  - BLOOD IMMUNOGLOBULIN E INCREASED [None]
  - BLOOD THYROID STIMULATING HORMONE INCREASED [None]
  - COMPLEMENT FACTOR C3 INCREASED [None]
  - HYPERGAMMAGLOBULINAEMIA [None]
  - PEMPHIGOID [None]
  - PULMONARY EMBOLISM [None]
  - SKIN ULCER [None]
